FAERS Safety Report 8908706 (Version 3)
Quarter: 2013Q4

REPORT INFORMATION
  Report Type: Spontaneous
  Country: US (occurrence: US)
  Receive Date: 20121113
  Receipt Date: 20131106
  Transmission Date: 20140711
  Serious: Yes (Other)
  Sender: FDA-Public Use
  Company Number: US-AMGEN-USASP2012010268

PATIENT
  Age: 68 Year
  Sex: Female
  Weight: 57.82 kg

DRUGS (2)
  1. ENBREL [Suspect]
     Indication: RHEUMATOID ARTHRITIS
     Dosage: 40 MG EVERY 10 DAYS
     Route: 058
     Dates: start: 20120131
  2. ENBREL [Suspect]
     Dosage: 50 MG EVERY 10 DAYS
     Dates: start: 20120131

REACTIONS (6)
  - Escherichia urinary tract infection [Recovered/Resolved]
  - Extra dose administered [Recovered/Resolved]
  - Rheumatoid arthritis [Unknown]
  - Contusion [Unknown]
  - Injection site erythema [Recovered/Resolved]
  - Injection site rash [Recovered/Resolved]
